FAERS Safety Report 6801592-5 (Version None)
Quarter: 2010Q2

REPORT INFORMATION
  Report Type: 
  Country: None (occurrence: None)
  Receive Date: 20100629
  Receipt Date: 20100614
  Transmission Date: 20101027
  Serious: Yes (Hospitalization, Other)
  Sender: FDA-Public Use
  Company Number: US-BAYER-201018453NA

PATIENT
  Age: 44 Year
  Sex: Female
  Weight: 61 kg

DRUGS (7)
  1. YASMIN [Suspect]
     Indication: CONTRACEPTION
     Route: 048
     Dates: start: 20011101, end: 20070101
  2. YASMIN [Suspect]
     Route: 048
     Dates: start: 20080101, end: 20090301
  3. OCELLA [Suspect]
     Indication: CONTRACEPTION
     Route: 048
     Dates: start: 20090301, end: 20090801
  4. PLAQUENIL [Concomitant]
     Indication: DERMATOMYOSITIS
     Dosage: UNIT DOSE: 200 MG
     Route: 048
  5. MAGNESIUM [Concomitant]
     Dosage: UNIT DOSE: 400 MG
     Route: 048
  6. VITAMINS [Concomitant]
     Route: 065
  7. LORTAB [Concomitant]
     Indication: HEADACHE
     Dosage: 1 EVERY 6 HOURS
     Route: 048

REACTIONS (4)
  - CEREBRAL INFARCTION [None]
  - DIZZINESS [None]
  - HEADACHE [None]
  - VISION BLURRED [None]
